FAERS Safety Report 16893140 (Version 9)
Quarter: 2021Q2

REPORT INFORMATION
  Report Type: Report from Study
  Country: None (occurrence: NL)
  Receive Date: 20191008
  Receipt Date: 20210611
  Transmission Date: 20210716
  Serious: Yes (Other)
  Sender: FDA-Public Use
  Company Number: NL-ABBVIE-19K-114-2860380-00

PATIENT
  Sex: Male

DRUGS (11)
  1. ROPINIROL [Concomitant]
     Active Substance: ROPINIROLE
     Indication: PRODUCT USED FOR UNKNOWN INDICATION
     Dosage: AT NIGHT
  2. DUODOPA [Suspect]
     Active Substance: CARBIDOPA\LEVODOPA
     Dosage: MD: 11.5 CD: 4.1 ED: 2.5, REMAINS 16 HOUR ADMINISTRATION
     Route: 050
  3. OPRYMEA [Concomitant]
     Active Substance: PRAMIPEXOLE DIHYDROCHLORIDE
     Indication: PRODUCT USED FOR UNKNOWN INDICATION
     Dates: start: 202002
  4. DUODOPA [Suspect]
     Active Substance: CARBIDOPA\LEVODOPA
     Dosage: MD: 11.5 CD: 4.3 ED: 2.5 REMAINS AT 16 HOURS
     Route: 050
  5. LEVODOPA/CARBIDOPA RETARD [Concomitant]
     Active Substance: CARBIDOPA\LEVODOPA
     Indication: PRODUCT USED FOR UNKNOWN INDICATION
     Dosage: 100/50 MG
  6. DUODOPA [Suspect]
     Active Substance: CARBIDOPA\LEVODOPA
     Indication: PARKINSON^S DISEASE
     Dosage: CD 3.5, ED 2.5, MD 11.0
     Route: 050
     Dates: start: 20150324
  7. DUODOPA [Suspect]
     Active Substance: CARBIDOPA\LEVODOPA
     Dosage: MD: 3.0ML, CD: 4.3ML/H, ED: 2.5ML, ND: 6.0ML, CND: 2.2ML/H,?END: 2.5ML
     Route: 050
  8. ALCOHOL. [Concomitant]
     Active Substance: ALCOHOL
     Indication: STOMA COMPLICATION
  9. DUODOPA [Suspect]
     Active Substance: CARBIDOPA\LEVODOPA
     Dosage: CONTINUOUS DOSE INCREASED WITH 0.1 TO 4.1
     Route: 050
  10. DUODOPA [Suspect]
     Active Substance: CARBIDOPA\LEVODOPA
     Dosage: MD: 11.5 ML, CD: 4.1 ML/H, ED: 2.5 ML? REMAINS AT 16 HOURS
     Route: 050
  11. SINEMET [Concomitant]
     Active Substance: CARBIDOPA\LEVODOPA
     Indication: PRODUCT USED FOR UNKNOWN INDICATION
     Dosage: AT NIGHT

REACTIONS (40)
  - Weight decreased [Recovered/Resolved]
  - Stoma site discharge [Recovered/Resolved]
  - General physical health deterioration [Not Recovered/Not Resolved]
  - Dyschezia [Recovered/Resolved]
  - Weight decreased [Not Recovered/Not Resolved]
  - Fatigue [Not Recovered/Not Resolved]
  - Unevaluable event [Recovered/Resolved]
  - General physical health deterioration [Recovered/Resolved]
  - Stoma site oedema [Recovered/Resolved]
  - Hallucination [Recovering/Resolving]
  - Urinary incontinence [Not Recovered/Not Resolved]
  - Gait disturbance [Not Recovered/Not Resolved]
  - Unevaluable event [Recovered/Resolved]
  - Communication disorder [Not Recovered/Not Resolved]
  - Loss of personal independence in daily activities [Not Recovered/Not Resolved]
  - Dyskinesia [Not Recovered/Not Resolved]
  - Confusional state [Not Recovered/Not Resolved]
  - Device difficult to use [Recovered/Resolved]
  - Abnormal faeces [Recovered/Resolved]
  - Nasopharyngitis [Not Recovered/Not Resolved]
  - Memory impairment [Not Recovered/Not Resolved]
  - On and off phenomenon [Recovering/Resolving]
  - Dizziness [Recovered/Resolved]
  - Freezing phenomenon [Not Recovered/Not Resolved]
  - Nocturia [Not Recovered/Not Resolved]
  - Malaise [Not Recovered/Not Resolved]
  - Embedded device [Recovered/Resolved]
  - Aphasia [Not Recovered/Not Resolved]
  - Muscle rigidity [Not Recovered/Not Resolved]
  - Extra dose administered [Not Recovered/Not Resolved]
  - Exercise tolerance decreased [Not Recovered/Not Resolved]
  - Stoma site erythema [Recovered/Resolved]
  - Therapeutic product effect incomplete [Unknown]
  - Influenza like illness [Not Recovered/Not Resolved]
  - Dyskinesia [Recovered/Resolved]
  - Tremor [Not Recovered/Not Resolved]
  - Cognitive disorder [Not Recovered/Not Resolved]
  - Speech disorder [Not Recovered/Not Resolved]
  - Reduced facial expression [Not Recovered/Not Resolved]
  - Mobility decreased [Not Recovered/Not Resolved]

NARRATIVE: CASE EVENT DATE: 2021
